FAERS Safety Report 20343025 (Version 12)
Quarter: 2025Q2

REPORT INFORMATION
  Report Type: Spontaneous
  Country: CA (occurrence: CA)
  Receive Date: 20220117
  Receipt Date: 20250624
  Transmission Date: 20250717
  Serious: Yes (Death, Life-Threatening, Hospitalization, Disabling, Congenital Anomaly, Other)
  Sender: NOVARTIS
  Company Number: CA-NOVARTISPH-NVSC2022CA006117

PATIENT
  Age: 43 Year
  Sex: Female
  Weight: 68 kg

DRUGS (171)
  1. AIMOVIG [Suspect]
     Active Substance: ERENUMAB-AOOE
     Indication: Migraine
     Route: 065
  2. NAPROXEN [Suspect]
     Active Substance: NAPROXEN
     Indication: Rheumatoid arthritis
     Dosage: 1 DOSAGE FORM, QD
     Route: 065
  3. NAPROXEN [Suspect]
     Active Substance: NAPROXEN
     Route: 065
  4. NAPROXEN [Suspect]
     Active Substance: NAPROXEN
     Dosage: 2 DF, Q12H
     Route: 065
  5. NAPROXEN [Suspect]
     Active Substance: NAPROXEN
     Dosage: 2 DOSAGE FORM, QD
     Route: 065
  6. NAPROXEN [Suspect]
     Active Substance: NAPROXEN
     Dosage: 4 DOSAGE FORM, QD
     Route: 065
  7. NAPROXEN [Suspect]
     Active Substance: NAPROXEN
     Dosage: 2 DF, BID 2 EVERY 1 DAYS
     Route: 065
  8. NAPROXEN [Suspect]
     Active Substance: NAPROXEN
     Dosage: 2 DF 2 EVERY 1 DAYS
     Route: 065
  9. NAPROXEN [Suspect]
     Active Substance: NAPROXEN
     Route: 065
  10. NAPROXEN [Suspect]
     Active Substance: NAPROXEN
     Route: 065
  11. NAPROXEN [Suspect]
     Active Substance: NAPROXEN
     Route: 065
  12. NAPROXEN [Suspect]
     Active Substance: NAPROXEN
     Route: 005
  13. ADALIMUMAB [Suspect]
     Active Substance: ADALIMUMAB
     Indication: Rheumatoid arthritis
     Route: 058
  14. RITUXIMAB [Suspect]
     Active Substance: RITUXIMAB
     Indication: Rheumatoid arthritis
     Route: 058
  15. RITUXIMAB [Suspect]
     Active Substance: RITUXIMAB
     Route: 043
  16. RITUXIMAB [Suspect]
     Active Substance: RITUXIMAB
     Route: 042
  17. RITUXIMAB [Suspect]
     Active Substance: RITUXIMAB
     Route: 042
  18. RITUXIMAB [Suspect]
     Active Substance: RITUXIMAB
     Route: 065
  19. RITUXIMAB [Suspect]
     Active Substance: RITUXIMAB
     Route: 042
  20. VITAMIN C [Suspect]
     Active Substance: ASCORBIC ACID
     Indication: Product used for unknown indication
     Route: 065
  21. ERELZI [Suspect]
     Active Substance: ETANERCEPT-SZZS
     Indication: Rheumatoid arthritis
     Route: 065
  22. ERELZI [Suspect]
     Active Substance: ETANERCEPT-SZZS
     Dosage: 50 MG, QW
     Route: 065
  23. CYANOCOBALAMIN [Suspect]
     Active Substance: CYANOCOBALAMIN
     Indication: Product used for unknown indication
     Route: 065
  24. COSENTYX [Suspect]
     Active Substance: SECUKINUMAB
     Indication: Rheumatoid arthritis
     Route: 065
  25. COSENTYX [Suspect]
     Active Substance: SECUKINUMAB
     Indication: Psoriatic arthropathy
     Route: 065
  26. COSENTYX [Suspect]
     Active Substance: SECUKINUMAB
     Route: 065
  27. ERENUMAB [Suspect]
     Active Substance: ERENUMAB
     Indication: Migraine
     Route: 065
  28. ALENDRONIC ACID [Suspect]
     Active Substance: ALENDRONIC ACID
     Indication: Rheumatoid arthritis
     Route: 065
  29. ALENDRONIC ACID [Suspect]
     Active Substance: ALENDRONIC ACID
     Route: 048
  30. ALENDRONIC ACID [Suspect]
     Active Substance: ALENDRONIC ACID
     Route: 048
  31. DICLOFENAC SODIUM [Suspect]
     Active Substance: DICLOFENAC SODIUM
     Indication: Product used for unknown indication
     Route: 065
  32. DICLOFENAC SODIUM [Suspect]
     Active Substance: DICLOFENAC SODIUM
     Route: 065
  33. FETZIMA [Suspect]
     Active Substance: LEVOMILNACIPRAN HYDROCHLORIDE
     Indication: Product used for unknown indication
     Dosage: 1 DOSAGE FORM, QD
     Route: 065
  34. FETZIMA [Suspect]
     Active Substance: LEVOMILNACIPRAN HYDROCHLORIDE
     Dosage: 1 DOSAGE FORM, QD
     Route: 065
  35. FETZIMA [Suspect]
     Active Substance: LEVOMILNACIPRAN HYDROCHLORIDE
     Dosage: 1 DOSAGE FORM, QD (1 EVERY 2 DAYS)
     Route: 065
  36. FINACEA [Suspect]
     Active Substance: AZELAIC ACID
     Indication: Product used for unknown indication
     Dosage: 1 DOSAGE FORM, QD
     Route: 065
  37. LAMICTAL [Suspect]
     Active Substance: LAMOTRIGINE
     Indication: Product used for unknown indication
     Route: 048
  38. LAMICTAL [Suspect]
     Active Substance: LAMOTRIGINE
     Route: 048
  39. LAMICTAL [Suspect]
     Active Substance: LAMOTRIGINE
     Route: 048
  40. LAMICTAL [Suspect]
     Active Substance: LAMOTRIGINE
     Route: 048
  41. LAMICTAL [Suspect]
     Active Substance: LAMOTRIGINE
     Route: 048
  42. LAMICTAL [Suspect]
     Active Substance: LAMOTRIGINE
     Route: 048
  43. LAMICTAL [Suspect]
     Active Substance: LAMOTRIGINE
     Route: 048
  44. LAMICTAL [Suspect]
     Active Substance: LAMOTRIGINE
     Dosage: 50 MG, BID (2 EVERY 1 DAYS)
     Route: 048
  45. LAMICTAL [Suspect]
     Active Substance: LAMOTRIGINE
     Dosage: 25 MG, BID (2 EVERY 1 DAYS)
     Route: 048
  46. LAMICTAL [Suspect]
     Active Substance: LAMOTRIGINE
     Route: 048
  47. LAMICTAL [Suspect]
     Active Substance: LAMOTRIGINE
     Dosage: 50 MG, BID (2 EVERY 1 DAYS)
     Route: 048
  48. LAMICTAL [Suspect]
     Active Substance: LAMOTRIGINE
     Dosage: 50 MG, BID (2 EVERY 1 DAYS)
     Route: 048
  49. LAMICTAL [Suspect]
     Active Substance: LAMOTRIGINE
     Dosage: 25 MG, BID (2 EVERY 1 DAYS)
     Route: 048
  50. MYRBETRIQ [Suspect]
     Active Substance: MIRABEGRON
     Indication: Migraine
     Dosage: 1 DOSAGE FORM, QD
     Route: 048
  51. MYRBETRIQ [Suspect]
     Active Substance: MIRABEGRON
     Indication: Product used for unknown indication
     Dosage: 1 DOSAGE FORM, QD
     Route: 048
  52. MYRBETRIQ [Suspect]
     Active Substance: MIRABEGRON
     Dosage: 1 DOSAGE FORM, QD
     Route: 048
  53. MYRBETRIQ [Suspect]
     Active Substance: MIRABEGRON
     Route: 048
  54. MYRBETRIQ [Suspect]
     Active Substance: MIRABEGRON
     Dosage: 1 DOSAGE FORM, QD
     Route: 048
  55. CETIRIZINE HYDROCHLORIDE [Suspect]
     Active Substance: CETIRIZINE HYDROCHLORIDE
     Indication: Rheumatoid arthritis
     Route: 065
  56. CETIRIZINE HYDROCHLORIDE [Suspect]
     Active Substance: CETIRIZINE HYDROCHLORIDE
     Indication: Off label use
     Route: 065
  57. CETIRIZINE HYDROCHLORIDE [Suspect]
     Active Substance: CETIRIZINE HYDROCHLORIDE
     Route: 065
  58. CETIRIZINE HYDROCHLORIDE [Suspect]
     Active Substance: CETIRIZINE HYDROCHLORIDE
     Route: 048
  59. CETIRIZINE HYDROCHLORIDE [Suspect]
     Active Substance: CETIRIZINE HYDROCHLORIDE
     Route: 048
  60. CETIRIZINE HYDROCHLORIDE [Suspect]
     Active Substance: CETIRIZINE HYDROCHLORIDE
     Dosage: 10 MG, QD
     Route: 048
  61. CETIRIZINE HYDROCHLORIDE [Suspect]
     Active Substance: CETIRIZINE HYDROCHLORIDE
     Route: 065
  62. TOPAMAX [Suspect]
     Active Substance: TOPIRAMATE
     Indication: Product used for unknown indication
     Dosage: 25 MG, QD
     Route: 065
  63. TOPAMAX [Suspect]
     Active Substance: TOPIRAMATE
     Dosage: 25 MG, QD
     Route: 065
  64. TOPICORT [Suspect]
     Active Substance: DESOXIMETASONE
     Indication: Product used for unknown indication
     Dosage: 25 MG, BID
     Route: 065
  65. TOPICORT [Suspect]
     Active Substance: DESOXIMETASONE
     Dosage: 1 DOSAGE FORM, BID (2 DOSAGE FORM, QD)
     Route: 065
  66. TOPICORT [Suspect]
     Active Substance: DESOXIMETASONE
     Dosage: 25 MG, BID (50 MG, QD)
     Route: 065
  67. VITAMIN D3 [Suspect]
     Active Substance: CHOLECALCIFEROL
     Indication: Product used for unknown indication
     Route: 065
  68. VITAMIN D3 [Suspect]
     Active Substance: CHOLECALCIFEROL
     Route: 065
  69. PHOSPHORUS [Suspect]
     Active Substance: PHOSPHORUS
     Indication: Product used for unknown indication
     Route: 065
  70. PHOSPHORUS [Suspect]
     Active Substance: PHOSPHORUS
     Route: 065
  71. VITAMIN D [Suspect]
     Active Substance: VITAMIN D NOS
     Indication: Product used for unknown indication
     Route: 065
  72. VITAMIN D3 [Suspect]
     Active Substance: CHOLECALCIFEROL
     Indication: Product used for unknown indication
     Route: 065
  73. VITAMIN D3 [Suspect]
     Active Substance: CHOLECALCIFEROL
     Route: 065
  74. CETIRIZINE [Suspect]
     Active Substance: CETIRIZINE HYDROCHLORIDE
     Indication: Product used for unknown indication
     Route: 065
  75. CETIRIZINE [Suspect]
     Active Substance: CETIRIZINE HYDROCHLORIDE
     Route: 065
  76. CETIRIZINE [Suspect]
     Active Substance: CETIRIZINE HYDROCHLORIDE
     Dosage: 3 DOSAGE FORM, QD
     Route: 065
  77. CETIRIZINE [Suspect]
     Active Substance: CETIRIZINE HYDROCHLORIDE
     Dosage: 1 DOSAGE FORM, QD
     Route: 065
  78. CETIRIZINE [Suspect]
     Active Substance: CETIRIZINE HYDROCHLORIDE
     Dosage: 3 DOSAGE FORM, BID (2 EVERY 1 DAYS)
     Route: 065
  79. CETIRIZINE HYDROCHLORIDE [Suspect]
     Active Substance: CETIRIZINE HYDROCHLORIDE
     Indication: Product used for unknown indication
     Route: 065
  80. DOMPERIDONE\PANTOPRAZOLE SODIUM [Suspect]
     Active Substance: DOMPERIDONE\PANTOPRAZOLE SODIUM
     Indication: Product used for unknown indication
     Dosage: 3 DOSAGE FORM, QD
     Route: 065
  81. DOMPERIDONE\PANTOPRAZOLE SODIUM [Suspect]
     Active Substance: DOMPERIDONE\PANTOPRAZOLE SODIUM
     Route: 065
  82. DESOXIMETASONE [Suspect]
     Active Substance: DESOXIMETASONE
     Indication: Rheumatoid arthritis
     Route: 065
  83. DESOXIMETASONE [Suspect]
     Active Substance: DESOXIMETASONE
     Dosage: 2 DOSAGE FORM, BID (2 EVERY 1 DAYS)
     Route: 065
  84. DESOXIMETASONE [Suspect]
     Active Substance: DESOXIMETASONE
     Dosage: 25 MG, BID (2 EVERY 1 DAYS)
     Route: 065
  85. DESOXIMETASONE [Suspect]
     Active Substance: DESOXIMETASONE
     Dosage: 50 MG, QD
     Route: 065
  86. DESOXIMETASONE [Suspect]
     Active Substance: DESOXIMETASONE
     Dosage: 3 DOSAGE FORM, QD
     Route: 065
  87. DESOXIMETASONE [Suspect]
     Active Substance: DESOXIMETASONE
     Dosage: 2 DOSAGE FORM, QD
     Route: 065
  88. DESOXIMETASONE [Suspect]
     Active Substance: DESOXIMETASONE
     Route: 065
  89. DESOXIMETASONE [Suspect]
     Active Substance: DESOXIMETASONE
     Dosage: 50 MG, QD
     Route: 065
  90. DESOXIMETASONE [Suspect]
     Active Substance: DESOXIMETASONE
     Route: 048
  91. DESOXIMETASONE [Suspect]
     Active Substance: DESOXIMETASONE
     Route: 048
  92. DESOXIMETASONE [Suspect]
     Active Substance: DESOXIMETASONE
     Route: 065
  93. STRATTERA [Suspect]
     Active Substance: ATOMOXETINE HYDROCHLORIDE
     Indication: Product used for unknown indication
     Route: 065
  94. STRATTERA [Suspect]
     Active Substance: ATOMOXETINE HYDROCHLORIDE
     Indication: Migraine
     Route: 065
  95. STRATTERA [Suspect]
     Active Substance: ATOMOXETINE HYDROCHLORIDE
     Route: 065
  96. VITAMINS NOS [Suspect]
     Active Substance: VITAMINS
     Indication: Product used for unknown indication
     Route: 065
  97. VITAMINS NOS [Suspect]
     Active Substance: VITAMINS
     Route: 065
  98. VITAMINS NOS [Suspect]
     Active Substance: VITAMINS
     Route: 065
  99. HYDROMORPHONE [Suspect]
     Active Substance: HYDROMORPHONE
     Indication: Product used for unknown indication
     Route: 065
  100. HYDROMORPHONE [Suspect]
     Active Substance: HYDROMORPHONE
     Route: 065
  101. HYDROMORPHONE [Suspect]
     Active Substance: HYDROMORPHONE
     Dosage: 2 DOSAGE FORM, BID (4 DOSAGE FORM, QD)
     Route: 065
  102. HYDROMORPHONE [Suspect]
     Active Substance: HYDROMORPHONE
     Dosage: 1 DOSAGE FORM, QD
     Route: 065
  103. HYDROMORPHONE [Suspect]
     Active Substance: HYDROMORPHONE
     Dosage: 1 DOSAGE FORM, BID (1 EVERY 2 DAYS)
     Route: 065
  104. HYDROMORPHONE [Suspect]
     Active Substance: HYDROMORPHONE
     Dosage: 4 DOSAGE FORM, QD
     Route: 065
  105. MAGNESIUM CARBONATE [Suspect]
     Active Substance: MAGNESIUM CARBONATE
     Indication: Product used for unknown indication
     Route: 065
  106. MAGNESIUM HYDROXIDE [Suspect]
     Active Substance: MAGNESIUM HYDROXIDE
     Indication: Product used for unknown indication
     Route: 065
  107. MAGNESIUM HYDROXIDE [Suspect]
     Active Substance: MAGNESIUM HYDROXIDE
     Route: 065
  108. MAGNESIUM HYDROXIDE [Suspect]
     Active Substance: MAGNESIUM HYDROXIDE
     Route: 065
  109. FOLIC ACID [Suspect]
     Active Substance: FOLIC ACID
     Indication: Rheumatoid arthritis
     Route: 065
  110. FOLIC ACID [Suspect]
     Active Substance: FOLIC ACID
     Route: 048
  111. FOLIC ACID [Suspect]
     Active Substance: FOLIC ACID
     Route: 065
  112. FOLIC ACID [Suspect]
     Active Substance: FOLIC ACID
     Route: 058
  113. FOLIC ACID [Suspect]
     Active Substance: FOLIC ACID
     Route: 065
  114. FOLIC ACID [Suspect]
     Active Substance: FOLIC ACID
     Route: 048
  115. FOLIC ACID [Suspect]
     Active Substance: FOLIC ACID
     Route: 048
  116. FOLIC ACID [Suspect]
     Active Substance: FOLIC ACID
     Route: 048
  117. FOLIC ACID [Suspect]
     Active Substance: FOLIC ACID
     Route: 065
  118. FOLIC ACID [Suspect]
     Active Substance: FOLIC ACID
     Route: 065
  119. FOLIC ACID [Suspect]
     Active Substance: FOLIC ACID
     Route: 065
  120. FOLIC ACID [Suspect]
     Active Substance: FOLIC ACID
     Route: 065
  121. FOLIC ACID [Suspect]
     Active Substance: FOLIC ACID
     Route: 065
  122. FOLIC ACID [Suspect]
     Active Substance: FOLIC ACID
     Route: 065
  123. FOLIC ACID [Suspect]
     Active Substance: FOLIC ACID
     Route: 065
  124. FOLIC ACID [Suspect]
     Active Substance: FOLIC ACID
     Route: 048
  125. FOLIC ACID [Suspect]
     Active Substance: FOLIC ACID
     Route: 048
  126. FOLIC ACID [Suspect]
     Active Substance: FOLIC ACID
     Route: 048
  127. FOLIC ACID [Suspect]
     Active Substance: FOLIC ACID
     Route: 048
  128. METHOTREXATE [Suspect]
     Active Substance: METHOTREXATE
     Indication: Rheumatoid arthritis
     Route: 065
  129. METHOTREXATE [Suspect]
     Active Substance: METHOTREXATE
     Indication: Psoriatic arthropathy
     Route: 065
  130. METHOTREXATE [Suspect]
     Active Substance: METHOTREXATE
     Route: 058
  131. METHOTREXATE [Suspect]
     Active Substance: METHOTREXATE
     Dosage: UNK, QW (25)
     Route: 058
  132. METHOTREXATE [Suspect]
     Active Substance: METHOTREXATE
     Route: 058
  133. METHOTREXATE [Suspect]
     Active Substance: METHOTREXATE
     Route: 058
  134. METHOTREXATE [Suspect]
     Active Substance: METHOTREXATE
     Route: 065
  135. METHOTREXATE [Suspect]
     Active Substance: METHOTREXATE
     Dosage: UNK, QW (25)
     Route: 065
  136. METHOTREXATE [Suspect]
     Active Substance: METHOTREXATE
     Dosage: 20 MG, QD
     Route: 058
  137. METHOTREXATE [Suspect]
     Active Substance: METHOTREXATE
     Dosage: 2 DOSAGE FORM, Q24H
     Route: 065
  138. METHOTREXATE [Suspect]
     Active Substance: METHOTREXATE
     Route: 065
  139. METHOTREXATE [Suspect]
     Active Substance: METHOTREXATE
     Route: 065
  140. METHOTREXATE [Suspect]
     Active Substance: METHOTREXATE
     Dosage: 15 MG, Q24H
     Route: 065
  141. METHOTREXATE [Suspect]
     Active Substance: METHOTREXATE
     Dosage: 20 MG, Q24H
     Route: 065
  142. METHOTREXATE [Suspect]
     Active Substance: METHOTREXATE
     Dosage: 2 DOSAGE FORM, Q24H
     Route: 065
  143. METHOTREXATE [Suspect]
     Active Substance: METHOTREXATE
     Dosage: 20 MG, QD
     Route: 048
  144. METHOTREXATE [Suspect]
     Active Substance: METHOTREXATE
     Dosage: 1 G, BID, (2 G QD)
     Route: 048
  145. METHOTREXATE [Suspect]
     Active Substance: METHOTREXATE
     Dosage: 25 MG, BID,  (50 MG QD)
     Route: 048
  146. METHOTREXATE [Suspect]
     Active Substance: METHOTREXATE
     Route: 048
  147. METHOTREXATE [Suspect]
     Active Substance: METHOTREXATE
     Dosage: UNK, QD
     Route: 048
  148. METHOTREXATE [Suspect]
     Active Substance: METHOTREXATE
     Dosage: 1 DOSAGE FORM, QD
     Route: 048
  149. METHOTREXATE [Suspect]
     Active Substance: METHOTREXATE
     Dosage: 15 MG, QW
     Route: 048
  150. METHOTREXATE [Suspect]
     Active Substance: METHOTREXATE
     Route: 048
  151. METHOTREXATE [Suspect]
     Active Substance: METHOTREXATE
     Dosage: 1 DOSAGE FORM, Q24H
     Route: 048
  152. METHOTREXATE [Suspect]
     Active Substance: METHOTREXATE
     Dosage: 1 G, Q12H
     Route: 048
  153. METHOTREXATE [Suspect]
     Active Substance: METHOTREXATE
     Dosage: 20 MG, Q24H
     Route: 048
  154. METHOTREXATE [Suspect]
     Active Substance: METHOTREXATE
     Dosage: 25 MG, Q24H
     Route: 048
  155. METHOTREXATE [Suspect]
     Active Substance: METHOTREXATE
     Dosage: 1 G, Q24H
     Route: 048
  156. METHOTREXATE [Suspect]
     Active Substance: METHOTREXATE
     Route: 048
  157. METHOTREXATE [Suspect]
     Active Substance: METHOTREXATE
     Dosage: 25 MG, QW
     Route: 048
  158. METHOTREXATE [Suspect]
     Active Substance: METHOTREXATE
     Dosage: 15 MG, Q24H
     Route: 048
  159. METHOTREXATE [Suspect]
     Active Substance: METHOTREXATE
     Dosage: 20 MG, QW
     Route: 048
  160. METHOTREXATE [Suspect]
     Active Substance: METHOTREXATE
     Dosage: 20 MG, QW
     Route: 048
  161. METHOTREXATE [Suspect]
     Active Substance: METHOTREXATE
     Dosage: 25 MG, QW
     Route: 013
  162. METHOTREXATE [Suspect]
     Active Substance: METHOTREXATE
     Route: 051
  163. METHOTREXATE [Suspect]
     Active Substance: METHOTREXATE
     Dosage: 25 MG, QW
     Route: 013
  164. METHOTREXATE [Suspect]
     Active Substance: METHOTREXATE
     Dosage: 20 MG, QW
     Route: 013
  165. METHOTREXATE [Suspect]
     Active Substance: METHOTREXATE
     Route: 013
  166. METHOTREXATE [Suspect]
     Active Substance: METHOTREXATE
     Dosage: 25 MG, QW
     Route: 013
  167. TRAZODONE [Suspect]
     Active Substance: TRAZODONE HYDROCHLORIDE
     Indication: Product used for unknown indication
     Dosage: 1 DOSAGE FORM, QD
     Route: 065
  168. TRAZODONE [Suspect]
     Active Substance: TRAZODONE HYDROCHLORIDE
     Dosage: 1 DOSAGE FORM, QD
     Route: 065
  169. TRAZODONE [Suspect]
     Active Substance: TRAZODONE HYDROCHLORIDE
     Dosage: 2 DOSAGE FORM, QD
     Route: 065
  170. CHOLECALCIFEROL [Concomitant]
     Active Substance: CHOLECALCIFEROL
     Indication: Product used for unknown indication
     Route: 065
  171. HYRIMOZ [Concomitant]
     Active Substance: ADALIMUMAB-ADAZ
     Indication: Product used for unknown indication
     Route: 058

REACTIONS (31)
  - Wheezing [Fatal]
  - Wound [Fatal]
  - Wound infection [Fatal]
  - X-ray abnormal [Fatal]
  - Prescribed underdose [Fatal]
  - Prescribed overdose [Fatal]
  - Therapeutic product effect decreased [Fatal]
  - Therapeutic product effect incomplete [Fatal]
  - Product use issue [Fatal]
  - Drug hypersensitivity [Fatal]
  - Dry mouth [Fatal]
  - Duodenal ulcer perforation [Fatal]
  - Dyspnoea [Fatal]
  - Ear pain [Fatal]
  - Exostosis [Fatal]
  - Hepatic cirrhosis [Fatal]
  - Hepatic enzyme increased [Fatal]
  - Hypercholesterolaemia [Fatal]
  - Hypertension [Fatal]
  - Ill-defined disorder [Fatal]
  - Impaired healing [Fatal]
  - C-reactive protein abnormal [Fatal]
  - C-reactive protein increased [Fatal]
  - Chest pain [Fatal]
  - Condition aggravated [Fatal]
  - Confusional state [Fatal]
  - Crohn^s disease [Fatal]
  - Contusion [Fatal]
  - Deep vein thrombosis postoperative [Fatal]
  - Live birth [Fatal]
  - Maternal exposure during pregnancy [Fatal]
